FAERS Safety Report 6753821-4 (Version None)
Quarter: 2010Q2

REPORT INFORMATION
  Report Type: 
  Country: None (occurrence: None)
  Receive Date: 20100601
  Receipt Date: 20100520
  Transmission Date: 20101027
  Serious: No
  Sender: FDA-Public Use
  Company Number: 2010SP023837

PATIENT
  Sex: Female

DRUGS (2)
  1. PEGINTERFERON ALFA-2B [Suspect]
  2. RIBAVIRIN [Suspect]

REACTIONS (8)
  - DYSPHAGIA [None]
  - EPISTAXIS [None]
  - HEADACHE [None]
  - PHOTOPHOBIA [None]
  - PYREXIA [None]
  - RHINITIS [None]
  - RHINORRHOEA [None]
  - SLEEP APNOEA SYNDROME [None]
